FAERS Safety Report 4652866-8 (Version None)
Quarter: 2005Q2

REPORT INFORMATION
  Report Type: 
  Country: None (occurrence: None)
  Receive Date: 20050502
  Receipt Date: 20050415
  Transmission Date: 20051028
  Serious: Yes (Hospitalization, Disabling)
  Sender: FDA-Public Use
  Company Number: 10902

PATIENT
  Age: 70 Year
  Sex: Male

DRUGS (3)
  1. PAMIDRONATE DISODIUM [Suspect]
     Indication: MULTIPLE MYELOMA
     Dosage: 90 MG IV
     Route: 042
     Dates: start: 20020506, end: 20050215
  2. THALIDOMIDE [Concomitant]
  3. BICALUTAMIDE [Concomitant]

REACTIONS (3)
  - BONE INFECTION [None]
  - OSTEONECROSIS [None]
  - TOOTH LOSS [None]
